FAERS Safety Report 4621502-9 (Version None)
Quarter: 2005Q1

REPORT INFORMATION
  Report Type: 
  Country: None (occurrence: None)
  Receive Date: 20050328
  Receipt Date: 20050316
  Transmission Date: 20050727
  Serious: Yes (Hospitalization)
  Sender: FDA-Public Use
  Company Number: HQWYE892008MAR05

PATIENT
  Age: 38 Year
  Sex: Male

DRUGS (13)
  1. RAPAMUNE [Suspect]
     Indication: PROPHYLAXIS AGAINST TRANSPLANT REJECTION
     Dosage: 8 MG 1X PER 1 DAY
     Route: 048
     Dates: start: 20030307, end: 20050309
  2. SEPTRA [Concomitant]
  3. FERROUS SULFATE TAB [Concomitant]
  4. ARANESP [Concomitant]
  5. LOSARTAN (LOSARTAN) [Concomitant]
  6. FUROSEMIDE [Concomitant]
  7. DOXAZOSIN (DOXAZOSIN) [Concomitant]
  8. AMLODIPINE [Concomitant]
  9. CARVEDILOL [Concomitant]
  10. ENALAPRIL MALEATE [Concomitant]
  11. ATORVASTATIN (ATORVASTATIN) [Concomitant]
  12. MYCOPHENOLATE MOFETIL (MYCOPHENOLATE MOFETIL) [Concomitant]
  13. PREDNISONE [Concomitant]

REACTIONS (8)
  - ANAEMIA [None]
  - COMPLICATIONS OF TRANSPLANTED KIDNEY [None]
  - GENERALISED OEDEMA [None]
  - IMMUNOSUPPRESSANT DRUG LEVEL DECREASED [None]
  - KIDNEY TRANSPLANT REJECTION [None]
  - MICROANGIOPATHIC HAEMOLYTIC ANAEMIA [None]
  - NEPHROTIC SYNDROME [None]
  - PLATELET COUNT DECREASED [None]
